FAERS Safety Report 5367136-2 (Version None)
Quarter: 2007Q2

REPORT INFORMATION
  Report Type: 
  Country: None (occurrence: None)
  Receive Date: 20070622
  Receipt Date: 20061004
  Transmission Date: 20071010
  Serious: No
  Sender: FDA-Public Use
  Company Number: US-BRISTOL-MYERS SQUIBB COMPANY-13530373

PATIENT
  Age: 75 Year
  Sex: Female
  Weight: 54 kg

DRUGS (1)
  1. SINEMET [Suspect]
     Indication: PARKINSON'S DISEASE

REACTIONS (5)
  - DYSKINESIA [None]
  - SENSORY DISTURBANCE [None]
  - SPEECH DISORDER [None]
  - TREMOR [None]
  - VISUAL ACUITY REDUCED [None]
